FAERS Safety Report 13626771 (Version 1)
Quarter: 2017Q2

REPORT INFORMATION
  Report Type: Spontaneous
  Country: US (occurrence: US)
  Receive Date: 20170607
  Receipt Date: 20170607
  Transmission Date: 20170830
  Serious: Yes (Hospitalization)
  Sender: FDA-Public Use
  Company Number: None

PATIENT
  Age: 52 Year
  Sex: Female
  Weight: 58.5 kg

DRUGS (13)
  1. D-MANNOS [Concomitant]
  2. ELMIRON [Concomitant]
     Active Substance: PENTOSAN POLYSULFATE SODIUM
  3. PROBIITIC [Concomitant]
  4. L-TRYPTOPHAN [Concomitant]
     Active Substance: TRYPTOPHAN
  5. INVANZ [Suspect]
     Active Substance: ERTAPENEM SODIUM
     Indication: URINARY TRACT INFECTION
     Dosage: QUANTITY:1 INJECTION(S);?
     Route: 030
     Dates: start: 20170315, end: 20170330
  6. ESTRACE [Concomitant]
     Active Substance: ESTRADIOL
  7. VITAMIN B12 [Concomitant]
     Active Substance: CYANOCOBALAMIN
  8. VITAMIN C [Concomitant]
     Active Substance: ASCORBIC ACID
  9. VIIBRYD [Concomitant]
     Active Substance: VILAZODONE HYDROCHLORIDE
  10. MEROPENEM. [Suspect]
     Active Substance: MEROPENEM
     Indication: ESCHERICHIA TEST POSITIVE
     Dosage: ?          QUANTITY:1 50 MG;?
     Route: 042
     Dates: start: 20161103, end: 20161130
  11. MEMAMTEDINE [Concomitant]
  12. AZO [Concomitant]
     Active Substance: PHENAZOPYRIDINE HYDROCHLORIDE
  13. OXYBUTIN [Concomitant]
     Active Substance: OXYBUTYNIN

REACTIONS (4)
  - Escherichia urinary tract infection [None]
  - Asthenia [None]
  - Abasia [None]
  - Clostridium difficile colitis [None]

NARRATIVE: CASE EVENT DATE: 20170526
